FAERS Safety Report 7032585-3 (Version None)
Quarter: 2010Q4

REPORT INFORMATION
  Report Type: 
  Country: None (occurrence: None)
  Receive Date: 20101004
  Receipt Date: 20100921
  Transmission Date: 20110411
  Serious: Yes (Hospitalization)
  Sender: FDA-Public Use
  Company Number: 0213803

PATIENT
  Sex: Male

DRUGS (1)
  1. TACHOSIL [Suspect]
     Indication: TRAUMATIC LIVER INJURY
     Dosage: 5 DOSAGE FORMS

REACTIONS (1)
  - ABSCESS [None]
